FAERS Safety Report 9876895 (Version 3)
Quarter: 2014Q1

REPORT INFORMATION
  Report Type: Spontaneous
  Country: JP (occurrence: JP)
  Receive Date: 20140206
  Receipt Date: 20140213
  Transmission Date: 20141002
  Serious: Yes (Death)
  Sender: FDA-Public Use
  Company Number: JP-ROCHE-1335874

PATIENT
  Age: 42 Year
  Sex: Male
  Weight: 67 kg

DRUGS (7)
  1. XELODA [Suspect]
     Indication: RECTAL CANCER METASTATIC
     Dosage: COMPLETED TREATMENT CYCLE NUMBER: 8
     Route: 048
     Dates: start: 20130625, end: 20131204
  2. AVASTIN [Suspect]
     Indication: RECTAL CANCER METASTATIC
     Dosage: TREATMENT LINE: 1 COMPLETED TREATEMNT CYCLE NUMBER :8
     Route: 041
     Dates: start: 20130625, end: 20131204
  3. ELPLAT [Concomitant]
     Indication: RECTAL CANCER METASTATIC
     Dosage: COMPLETED TREATMENT CYCLE NUMBER: 8
     Route: 041
     Dates: start: 20130625, end: 20131204
  4. TAKEPRON [Concomitant]
     Indication: PROPHYLAXIS
     Route: 065
  5. HYPEN [Concomitant]
     Indication: PAIN
     Route: 065
  6. OXYCONTIN [Concomitant]
     Indication: PAIN
     Route: 065
  7. GOSHAJINKIGAN [Concomitant]
     Indication: PROPHYLAXIS
     Route: 065

REACTIONS (2)
  - Tumour haemorrhage [Fatal]
  - Shock haemorrhagic [Fatal]
